FAERS Safety Report 19310424 (Version 1)
Quarter: 2021Q2

REPORT INFORMATION
  Report Type: Spontaneous
  Country: GB (occurrence: GB)
  Receive Date: 20210526
  Receipt Date: 20210526
  Transmission Date: 20210717
  Serious: Yes (Hospitalization, Other)
  Sender: FDA-Public Use
  Company Number: GB-PFIZER INC-2021546749

PATIENT
  Age: 40 Year
  Sex: Male
  Weight: 78.7 kg

DRUGS (18)
  1. CARBOPLATIN. [Suspect]
     Active Substance: CARBOPLATIN
     Indication: B-CELL LYMPHOMA
     Dosage: 700 MG R?ICE, OVER 60 MINUTES
     Route: 042
     Dates: start: 20201204
  2. RITUXIMAB. [Suspect]
     Active Substance: RITUXIMAB
     Indication: B-CELL LYMPHOMA
     Dosage: OVER 60 MINUTES
     Route: 042
     Dates: start: 20200312, end: 20200312
  3. IFOSFAMIDE. [Suspect]
     Active Substance: IFOSFAMIDE
     Indication: B-CELL LYMPHOMA
     Dosage: OVER 12 HOURS
     Route: 042
     Dates: start: 20200412, end: 20200512
  4. BENZYDAMINE HYDROCHLORIDE [Concomitant]
     Active Substance: BENZYDAMINE HYDROCHLORIDE
     Dosage: 40 ML, 4X/DAY
     Route: 048
  5. METOCLOPRAMIDE HYDROCHLORIDE. [Concomitant]
     Active Substance: METOCLOPRAMIDE HYDROCHLORIDE
     Dosage: 30 MG, 3X/DAY
     Route: 048
  6. ETOPOSIDE. [Suspect]
     Active Substance: ETOPOSIDE
     Indication: B-CELL LYMPHOMA
     Dosage: OVER 60 MINUTES
     Route: 065
     Dates: start: 20200312, end: 20200512
  7. ALLOPURINOL. [Concomitant]
     Active Substance: ALLOPURINOL
     Dosage: 300 MG, 1X/DAY
     Route: 048
  8. DEXAMETHASONE. [Concomitant]
     Active Substance: DEXAMETHASONE
     Dosage: 8 MG, 2X/DAY
     Route: 048
     Dates: end: 20200712
  9. ONDANSETRON [Concomitant]
     Active Substance: ONDANSETRON
     Dosage: 16 MG, 2X/DAY
     Route: 048
     Dates: end: 20200712
  10. TRIMETHOPRIM. [Concomitant]
     Active Substance: TRIMETHOPRIM
     Dosage: 960 MG MONDAY, WEDNESDAY, FRIDAY
     Route: 048
  11. FILGRASTIM [Concomitant]
     Active Substance: FILGRASTIM
     Indication: FEBRILE NEUTROPENIA
     Dosage: UNK
     Dates: start: 20200812
  12. RITUXIMAB. [Suspect]
     Active Substance: RITUXIMAB
     Dosage: 700 MG R?ICE, OVER 60 MINUTES
     Route: 042
     Dates: start: 20201203
  13. ETOPOSIDE. [Suspect]
     Active Substance: ETOPOSIDE
     Dosage: 200 MG R?ICE, OVER 60 MINUTES
     Route: 042
     Dates: start: 20201203, end: 20201205
  14. OMEPRAZOLE. [Concomitant]
     Active Substance: OMEPRAZOLE
     Dosage: 20 MG, 1X/DAY
     Route: 048
  15. IFOSFAMIDE. [Suspect]
     Active Substance: IFOSFAMIDE
     Dosage: 5040 MG R?ICE, OVER 12 HOURS
     Route: 042
     Dates: start: 20201204, end: 20201205
  16. SODIUM CHLORIDE. [Concomitant]
     Active Substance: SODIUM CHLORIDE
     Dosage: 40 ML, 4X/DAY
     Route: 048
  17. CARBOPLATIN. [Suspect]
     Active Substance: CARBOPLATIN
     Dosage: OVER 60 MINUTES
     Route: 065
     Dates: start: 20200412, end: 20200412
  18. ACICLOVIR [Concomitant]
     Active Substance: ACYCLOVIR
     Dosage: 800 MG EVERY 2 DAYS
     Route: 048

REACTIONS (3)
  - C-reactive protein increased [Unknown]
  - White blood cell count decreased [Unknown]
  - Febrile neutropenia [Recovered/Resolved]

NARRATIVE: CASE EVENT DATE: 202012
